FAERS Safety Report 12059874 (Version 9)
Quarter: 2016Q4

REPORT INFORMATION
  Report Type: Spontaneous
  Country: JP (occurrence: JP)
  Receive Date: 20160210
  Receipt Date: 20161209
  Transmission Date: 20170206
  Serious: Yes (Hospitalization, Other)
  Sender: FDA-Public Use
  Company Number: JP-ACTELION-A-CH2015-127125

PATIENT
  Age: 41 Year
  Sex: Male

DRUGS (13)
  1. OPSUMIT [Suspect]
     Active Substance: MACITENTAN
     Indication: PULMONARY ARTERIAL HYPERTENSION
     Dosage: 10 MG, QD
     Route: 048
     Dates: start: 20151026, end: 20151106
  2. TADALAFIL [Concomitant]
     Active Substance: TADALAFIL
     Dosage: 20 MG, UNK
     Dates: start: 20160525
  3. OPSUMIT [Suspect]
     Active Substance: MACITENTAN
     Dosage: 10 MG, QD
     Route: 048
     Dates: start: 20151108
  4. OXYGEN. [Concomitant]
     Active Substance: OXYGEN
  5. AZOSEMIDE [Concomitant]
     Active Substance: AZOSEMIDE
     Dosage: 15 MG, UNK
     Dates: start: 20160616, end: 20160703
  6. DIGOXIN. [Concomitant]
     Active Substance: DIGOXIN
  7. LASIX [Concomitant]
     Active Substance: FUROSEMIDE
  8. UBIDECARENONE [Concomitant]
     Active Substance: UBIDECARENONE
  9. SPIRONOLACTONE. [Concomitant]
     Active Substance: SPIRONOLACTONE
     Dosage: 25 MG, UNK
     Dates: start: 20160822
  10. FUROSEMIDE. [Concomitant]
     Active Substance: FUROSEMIDE
  11. SUVOREXANT. [Suspect]
     Active Substance: SUVOREXANT
     Indication: EPILEPSY
     Dosage: UNK
     Route: 048
     Dates: start: 20160329
  12. KEPPRA [Suspect]
     Active Substance: LEVETIRACETAM
     Indication: SEIZURE
     Dosage: 500 MG, BID
     Route: 048
     Dates: start: 20160404
  13. AZOSEMIDE [Concomitant]
     Active Substance: AZOSEMIDE
     Dosage: 30 MG, UNK
     Dates: start: 20160704

REACTIONS (14)
  - Malaise [Recovered/Resolved]
  - Seizure anoxic [Recovered/Resolved]
  - Right ventricular failure [Unknown]
  - Aspartate aminotransferase increased [Recovered/Resolved]
  - Hypoxia [Recovered/Resolved]
  - Epilepsy [Recovered/Resolved]
  - Seizure [Recovered/Resolved]
  - Altered state of consciousness [Recovered/Resolved]
  - Oxygen saturation decreased [Recovered/Resolved]
  - Alanine aminotransferase increased [Recovered/Resolved]
  - Hepatic function abnormal [Recovered/Resolved]
  - Blood alkaline phosphatase increased [Recovered/Resolved]
  - Hepatic congestion [Recovered/Resolved]
  - Blood bilirubin [Recovered/Resolved]

NARRATIVE: CASE EVENT DATE: 20151105
